FAERS Safety Report 10409256 (Version 2)
Quarter: 2015Q1

REPORT INFORMATION
  Report Type: Spontaneous
  Country: US (occurrence: None)
  Receive Date: 20140131
  Receipt Date: 20150129
  Transmission Date: 20150720
  Serious: Yes (Other)
  Sender: FDA-Public Use
  Company Number: 099172U

PATIENT
  Age: 39 Year
  Sex: Male
  Weight: 77.1 kg

DRUGS (2)
  1. KEPPRA XR [Suspect]
     Active Substance: LEVETIRACETAM
     Indication: SEIZURE
     Dosage: 500MG, EXP DATE: 7-FEB-2014
     Dates: start: 201309
  2. CARBAMAZEPINE. [Concomitant]
     Active Substance: CARBAMAZEPINE

REACTIONS (2)
  - Inappropriate schedule of drug administration [None]
  - Seizure [None]

NARRATIVE: CASE EVENT DATE: 2013
